FAERS Safety Report 5805845-9 (Version None)
Quarter: 2008Q3

REPORT INFORMATION
  Report Type: 
  Country: None (occurrence: None)
  Receive Date: 20080710
  Receipt Date: 20080625
  Transmission Date: 20090109
  Serious: Yes (Other)
  Sender: FDA-Public Use
  Company Number: GB-ASTRAZENECA-2008GB01275

PATIENT

DRUGS (2)
  1. ZOLADEX [Suspect]
     Route: 058
  2. CASODEX [Concomitant]
     Dosage: 50MG, 3 WEEKS

REACTIONS (2)
  - ASTHMA [None]
  - PULMONARY OEDEMA [None]
